FAERS Safety Report 9115935 (Version 1)
Quarter: 2013Q1

REPORT INFORMATION
  Report Type: Spontaneous
  Country: ES (occurrence: ES)
  Receive Date: 20130225
  Receipt Date: 20130225
  Transmission Date: 20140127
  Serious: Yes (Hospitalization)
  Sender: FDA-Public Use
  Company Number: ES-PFIZER INC-2013066677

PATIENT
  Age: 81 Year
  Sex: Female

DRUGS (6)
  1. IBUPROFEN [Suspect]
     Indication: PAIN
     Dosage: 600 MG, UNK
     Route: 048
     Dates: start: 201110, end: 20120702
  2. ZALDIAR [Interacting]
     Indication: PAIN
     Dosage: 1 DF, UNK
     Route: 048
     Dates: start: 2011, end: 20120702
  3. ACETYLSALICYLIC ACID [Interacting]
     Indication: PAIN
     Dosage: 100 MG, UNK
     Route: 048
     Dates: start: 2009, end: 20120702
  4. SIMVASTATIN [Concomitant]
     Indication: HYPERLIPIDAEMIA
     Dosage: 20 MG, UNK
     Route: 048
     Dates: start: 2009
  5. ENALAPRIL MALEATE [Concomitant]
     Indication: HYPERTENSION
     Dosage: 20 MG, UNK
     Route: 048
     Dates: start: 2006
  6. OMEPRAZOLE [Concomitant]
     Indication: PROPHYLAXIS
     Dosage: 20 MG, UNK
     Route: 048
     Dates: start: 2006

REACTIONS (2)
  - Drug interaction [Recovered/Resolved]
  - Lower gastrointestinal haemorrhage [Recovered/Resolved]
